FAERS Safety Report 4703014-7 (Version None)
Quarter: 2005Q2

REPORT INFORMATION
  Report Type: 
  Country: None (occurrence: None)
  Receive Date: 20050628
  Receipt Date: 20050628
  Transmission Date: 20051028
  Serious: No
  Sender: FDA-Public Use
  Company Number: None

PATIENT
  Age: 63 Year
  Sex: Male
  Weight: 113.3993 kg

DRUGS (4)
  1. CLONAZEPAM [Suspect]
     Indication: RESTLESS LEGS SYNDROME
     Dosage: TAKE 1 OR 2 TABLETS BY MOUTH @ BEDTIME
     Dates: start: 20040930, end: 20041013
  2. CLONAZEPAM [Suspect]
     Indication: SLEEP DISORDER
     Dosage: TAKE 1 OR 2 TABLETS BY MOUTH @ BEDTIME
     Dates: start: 20040930, end: 20041013
  3. RESTORIL [Concomitant]
  4. XANAX [Concomitant]

REACTIONS (12)
  - ABDOMINAL DISTENSION [None]
  - CONFUSIONAL STATE [None]
  - COORDINATION ABNORMAL [None]
  - CRYING [None]
  - DEPRESSION [None]
  - GASTROINTESTINAL DISORDER [None]
  - HEPATOCELLULAR DAMAGE [None]
  - MALAISE [None]
  - MEMORY IMPAIRMENT [None]
  - MENTAL DISORDER [None]
  - VISION BLURRED [None]
  - WEIGHT DECREASED [None]
